FAERS Safety Report 5816127-3 (Version None)
Quarter: 2008Q3

REPORT INFORMATION
  Report Type: 
  Country: None (occurrence: None)
  Receive Date: 20080717
  Receipt Date: 20080717
  Transmission Date: 20090109
  Serious: Yes (Hospitalization, Other)
  Sender: FDA-Public Use
  Company Number: None

PATIENT
  Age: 54 Year
  Sex: Male
  Weight: 77.1115 kg

DRUGS (1)
  1. MORPHINE SULFATE 30 MG ER (ETHEX) [Suspect]
     Indication: PAIN
     Dosage: 30MG 2X DAILY ORAL
     Route: 048
     Dates: start: 20071101, end: 20080628

REACTIONS (9)
  - AGGRESSION [None]
  - BLOOD PRESSURE INCREASED [None]
  - CHEST PAIN [None]
  - DIPLOPIA [None]
  - FLASHBACK [None]
  - INSOMNIA [None]
  - PHARMACEUTICAL PRODUCT COMPLAINT [None]
  - SUICIDAL IDEATION [None]
  - TACHYCARDIA [None]
